FAERS Safety Report 15781220 (Version 4)
Quarter: 2020Q3

REPORT INFORMATION
  Report Type: Spontaneous
  Country: KR (occurrence: KR)
  Receive Date: 20190102
  Receipt Date: 20200723
  Transmission Date: 20201102
  Serious: Yes (Death, Hospitalization, Other)
  Sender: FDA-Public Use
  Company Number: KR-SA-2018SA396934

PATIENT

DRUGS (13)
  1. TAXOTERE [Suspect]
     Active Substance: DOCETAXEL
     Dosage: ?} 51.2MG (BAS: 1.6/32 MG/M2) (BIWEEKLY) QOW
     Route: 042
     Dates: start: 20190110, end: 20190110
  2. BICALUTAMIDE. [Concomitant]
     Active Substance: BICALUTAMIDE
     Indication: ANTIANDROGEN THERAPY
     Dosage: 1 DF, QD
     Route: 048
     Dates: start: 20181105, end: 20190225
  3. DEXAMETHASONE. [Concomitant]
     Active Substance: DEXAMETHASONE
     Indication: PROPHYLACTIC CHEMOTHERAPY
     Dosage: 15 MG, QOW (5 MG)
     Route: 042
     Dates: start: 20181204, end: 20181204
  4. TAXOTERE [Suspect]
     Active Substance: DOCETAXEL
     Dosage: ?} 51.2MG (BAS: 1.6/32 MG/M2) (BIWEEKLY) QOW
     Route: 042
     Dates: start: 20190124, end: 20190124
  5. TAXOTERE [Suspect]
     Active Substance: DOCETAXEL
     Dosage: ?} 41.6MG(BAS: 1.6/26 MG/M2) (BIWEEKLY) QOW
     Route: 042
     Dates: start: 20190213, end: 20190213
  6. CALTEO [Concomitant]
     Indication: HORMONE THERAPY
     Dosage: 2 DF, QD
     Route: 048
     Dates: start: 20181204, end: 20190225
  7. RAMOSETRON HCL [Concomitant]
     Active Substance: RAMOSETRON HYDROCHLORIDE
     Dosage: 0.3 MG, QOW (1VIAL)
     Route: 042
     Dates: start: 20190213, end: 20190213
  8. DEXAMETHASONE. [Concomitant]
     Active Substance: DEXAMETHASONE
     Dosage: 15 MG, QOW (5 MG)
     Route: 042
     Dates: start: 20190213, end: 20190213
  9. TAXOTERE [Suspect]
     Active Substance: DOCETAXEL
     Dosage: ?} 64MG (BAS: 1.6/40MG/M2) (BIWEEKLY) QOW
     Route: 042
     Dates: start: 20181220, end: 20181220
  10. TAXOTERE [Suspect]
     Active Substance: DOCETAXEL
     Indication: PROSTATE CANCER
     Dosage: ?} 64MG (BAS: 1.6/40MG/M2) (BIWEEKLY) QOW
     Route: 042
     Dates: start: 20181204, end: 20181204
  11. CALTEO [Concomitant]
     Indication: PROPHYLAXIS
  12. RAMOSETRON HCL [Concomitant]
     Active Substance: RAMOSETRON HYDROCHLORIDE
     Indication: PROPHYLACTIC CHEMOTHERAPY
     Dosage: 0.3 MG, QOW (1VIAL)
     Route: 042
     Dates: start: 20181204, end: 20181204
  13. PREDNISOLONE. [Concomitant]
     Active Substance: PREDNISOLONE
     Indication: PROPHYLACTIC CHEMOTHERAPY
     Dosage: 1 DF, BID
     Route: 048
     Dates: start: 20181204, end: 20190225

REACTIONS (11)
  - Sudden death [Fatal]
  - Atrial fibrillation [Unknown]
  - Pain [Unknown]
  - Nausea [Unknown]
  - Haematochezia [Recovered/Resolved]
  - Blood phosphorus decreased [Unknown]
  - Decreased appetite [Recovered/Resolved]
  - Asthenia [Unknown]
  - Dyspepsia [Recovered/Resolved]
  - Decreased appetite [Unknown]
  - Diarrhoea [Unknown]

NARRATIVE: CASE EVENT DATE: 20181204
